FAERS Safety Report 11647547 (Version 3)
Quarter: 2016Q2

REPORT INFORMATION
  Report Type: Report from Study
  Country: US (occurrence: US)
  Receive Date: 20151021
  Receipt Date: 20160401
  Transmission Date: 20160815
  Serious: No
  Sender: FDA-Public Use
  Company Number: PHEH2015US021011

PATIENT
  Sex: Male
  Weight: 43.54 kg

DRUGS (1)
  1. TOBI PODHALER [Suspect]
     Active Substance: TOBRAMYCIN
     Indication: CYSTIC FIBROSIS
     Dosage: 112 MG, BID
     Route: 055

REACTIONS (4)
  - Dry mouth [Unknown]
  - Dry throat [Unknown]
  - Respiratory tract congestion [Unknown]
  - Cough [Unknown]
